FAERS Safety Report 9468099 (Version 1)
Quarter: 2013Q3

REPORT INFORMATION
  Report Type: Spontaneous
  Country: US (occurrence: US)
  Receive Date: 20130821
  Receipt Date: 20130821
  Transmission Date: 20140515
  Serious: Yes (Disabling)
  Sender: FDA-Public Use
  Company Number: US-PFIZER INC-2013238361

PATIENT
  Age: 49 Year
  Sex: Male
  Weight: 99.32 kg

DRUGS (2)
  1. VIAGRA [Suspect]
     Indication: ERECTILE DYSFUNCTION
     Dosage: UNK, AS NEEDED
     Route: 048
  2. PROZAC [Concomitant]
     Dosage: UNK

REACTIONS (1)
  - Arthropathy [Unknown]
